FAERS Safety Report 9230661 (Version 4)
Quarter: 2013Q3

REPORT INFORMATION
  Report Type: Spontaneous
  Country: US (occurrence: US)
  Receive Date: 20130415
  Receipt Date: 20130715
  Transmission Date: 20140515
  Serious: Yes (Death, Life-Threatening, Hospitalization, Disabling, Other)
  Sender: FDA-Public Use
  Company Number: US-009507513-1304USA006188

PATIENT
  Sex: Female
  Weight: 64.85 kg

DRUGS (8)
  1. JANUVIA [Suspect]
     Indication: TYPE 2 DIABETES MELLITUS
     Dosage: 1/2 TABLET
     Route: 048
     Dates: start: 20090521, end: 20121015
  2. FLUTICASONE [Concomitant]
     Dosage: UNK
  3. SIMVASTATIN TABLETS, USP [Concomitant]
     Dosage: UNK
     Route: 048
  4. METOPROLOL [Concomitant]
  5. ASPIRIN [Concomitant]
  6. BENAZEPRIL HYDROCHLORIDE [Concomitant]
  7. VITAMINS (UNSPECIFIED) [Concomitant]
  8. XANAX [Concomitant]
     Dosage: UNK

REACTIONS (7)
  - Multi-organ failure [Fatal]
  - Pancreatitis necrotising [Fatal]
  - Acute respiratory distress syndrome [Fatal]
  - Septic shock [Fatal]
  - Arrhythmia [Unknown]
  - Renal cyst [Unknown]
  - Wrong technique in drug usage process [Unknown]
